FAERS Safety Report 8207837-1 (Version None)
Quarter: 2012Q1

REPORT INFORMATION
  Report Type: 
  Country: None (occurrence: None)
  Receive Date: 20120314
  Receipt Date: 20120229
  Transmission Date: 20120608
  Serious: Yes (Other)
  Sender: FDA-Public Use
  Company Number: EG-COVIDIEN/TYCO HEALTHCARE/MALLINCKRODT-T201200999

PATIENT
  Age: 42 Year

DRUGS (1)
  1. SODIUM IODIDE I 131 [Suspect]
     Dosage: UNK

REACTIONS (1)
  - HYPOTHYROIDISM [None]
